FAERS Safety Report 24966074 (Version 1)
Quarter: 2025Q1

REPORT INFORMATION
  Report Type: Spontaneous
  Country: CN (occurrence: CN)
  Receive Date: 20250213
  Receipt Date: 20250213
  Transmission Date: 20250408
  Serious: Yes (Hospitalization)
  Sender: FRESENIUS KABI
  Company Number: CN-FreseniusKabi-FK202502203

PATIENT
  Age: 54 Year
  Sex: Female

DRUGS (1)
  1. KABIVEN [Suspect]
     Active Substance: ALANINE\ARGININE\ASPARTIC ACID\CALCIUM CHLORIDE\DEXTROSE MONOHYDRATE\GLUTAMIC ACID\GLYCINE\HISTIDINE
     Indication: Nutritional supplementation
     Dosage: FOA-INJECTION?THERAPY START DATE TIME AT 10:02
     Route: 041
     Dates: start: 20250203, end: 20250203

REACTIONS (4)
  - Face oedema [Recovering/Resolving]
  - Eyelid oedema [Not Recovered/Not Resolved]
  - Rash maculo-papular [Recovering/Resolving]
  - Pyrexia [Not Recovered/Not Resolved]

NARRATIVE: CASE EVENT DATE: 20250203
